FAERS Safety Report 5288975-2 (Version None)
Quarter: 2007Q2

REPORT INFORMATION
  Report Type: 
  Country: None (occurrence: None)
  Receive Date: 20070405
  Receipt Date: 20070327
  Transmission Date: 20071010
  Serious: Yes (Hospitalization, Other)
  Sender: FDA-Public Use
  Company Number: JP-PFIZER INC-2007019481

PATIENT
  Sex: Male

DRUGS (4)
  1. JZOLOFT [Suspect]
     Indication: DEPRESSION
     Dosage: DAILY DOSE:50MG
     Route: 048
     Dates: start: 20070209, end: 20070228
  2. TETRAMIDE [Concomitant]
     Route: 048
  3. BROTIZOLAM [Concomitant]
     Route: 048
  4. AMOBAN [Concomitant]
     Route: 048
     Dates: start: 20050312

REACTIONS (2)
  - CONVULSION [None]
  - LOSS OF CONSCIOUSNESS [None]
